FAERS Safety Report 6363271-0 (Version None)
Quarter: 2009Q3

REPORT INFORMATION
  Report Type: 
  Country: None (occurrence: None)
  Receive Date: 20090919
  Receipt Date: 20090617
  Transmission Date: 20100115
  Serious: No
  Sender: FDA-Public Use
  Company Number: US-ABBOTT-09P-163-0580605-00

PATIENT
  Weight: 54.48 kg

DRUGS (3)
  1. HUMIRA [Suspect]
     Indication: CROHN'S DISEASE
     Dates: start: 20090301
  2. LOPERAMIDE [Concomitant]
     Indication: DIARRHOEA
  3. ALOEELITE [Concomitant]
     Indication: DIARRHOEA
     Dates: start: 20090601

REACTIONS (3)
  - DIARRHOEA [None]
  - DRUG DOSE OMISSION [None]
  - INJECTION SITE PAIN [None]
